FAERS Safety Report 16366030 (Version 2)
Quarter: 2019Q2

REPORT INFORMATION
  Report Type: Spontaneous
  Country: US (occurrence: US)
  Receive Date: 20190529
  Receipt Date: 20190604
  Transmission Date: 20190711
  Serious: Yes (Other)
  Sender: FDA-Public Use
  Company Number: US-DRREDDYS-USA/USA/19/0110612

PATIENT
  Age: 45 Year
  Sex: Female

DRUGS (10)
  1. DOXORUBICIN HYDROCHLORIDE LIPOSOME INJECTION 20 MG/10 ML (2 MG/ML) AND [Suspect]
     Active Substance: DOXORUBICIN HYDROCHLORIDE
     Dosage: DOXORUBICIN
  2. DOXORUBICIN HYDROCHLORIDE LIPOSOME INJECTION 20 MG/10 ML (2 MG/ML) AND [Suspect]
     Active Substance: DOXORUBICIN HYDROCHLORIDE
     Dosage: BRIEFLY RESUMING PEGYLATED LIPOSOMAL DOXORUBICIN
  3. DOXORUBICIN HYDROCHLORIDE LIPOSOME INJECTION 20 MG/10 ML (2 MG/ML) AND [Suspect]
     Active Substance: DOXORUBICIN HYDROCHLORIDE
     Indication: CUTANEOUS T-CELL LYMPHOMA
     Dosage: 20 MG/M2 EVERY 2 WEEKS; BRIEFLY RESUMING PEGYLATED LIPOSOMAL DOXORUBICIN
     Route: 065
  4. DOXORUBICIN HYDROCHLORIDE LIPOSOME INJECTION 20 MG/10 ML (2 MG/ML) AND [Suspect]
     Active Substance: DOXORUBICIN HYDROCHLORIDE
     Dosage: PEGYLATED LIPOSOMAL DOXORUBICIN
  5. VINCRISTINE [Concomitant]
     Active Substance: VINCRISTINE
     Indication: CUTANEOUS T-CELL LYMPHOMA
     Dosage: FIVE CYCLES OF CVP PLUS PLD
  6. PREDNISONE. [Concomitant]
     Active Substance: PREDNISONE
     Indication: CUTANEOUS T-CELL LYMPHOMA
     Dosage: FIVE CYCLES OF CVP PLUS PLD
  7. CYCLOPHOSPHAMIDE. [Concomitant]
     Active Substance: CYCLOPHOSPHAMIDE
     Indication: CUTANEOUS T-CELL LYMPHOMA
     Dosage: FIVE CYCLES OF CVP PLUS PLD
  8. CYCLOPHOSPHAMIDE. [Concomitant]
     Active Substance: CYCLOPHOSPHAMIDE
     Dosage: FIVE CYCLES OF CVP PLUS PLD
  9. PREDNISONE. [Concomitant]
     Active Substance: PREDNISONE
     Dosage: FIVE CYCLES OF CVP PLUS PLD
  10. VINCRISTINE [Concomitant]
     Active Substance: VINCRISTINE
     Dosage: FIVE CYCLES OF CVP PLUS PLD

REACTIONS (4)
  - Palmar-plantar erythrodysaesthesia syndrome [Unknown]
  - Stomatitis [Unknown]
  - Squamous cell carcinoma of the oral cavity [Unknown]
  - Squamous cell carcinoma of skin [Unknown]
